FAERS Safety Report 4680421-2 (Version None)
Quarter: 2005Q2

REPORT INFORMATION
  Report Type: 
  Country: None (occurrence: None)
  Receive Date: 20050601
  Receipt Date: 20050518
  Transmission Date: 20051028
  Serious: Yes (Hospitalization)
  Sender: FDA-Public Use
  Company Number: GBS050517428

PATIENT
  Age: 48 Year
  Sex: Male
  Weight: 80 kg

DRUGS (3)
  1. PROZAC [Suspect]
     Indication: DEPRESSION
     Dosage: 20 MG
     Dates: start: 20041101, end: 20041201
  2. ERYTHROMYCIN (ERYTHROMYCIN 00020901/) [Concomitant]
  3. MINOCIN (MINOCYCLINE HYDROCHLORIDE) [Concomitant]

REACTIONS (2)
  - OEDEMA GENITAL [None]
  - SCROTAL OEDEMA [None]
